FAERS Safety Report 10241391 (Version 3)
Quarter: 2015Q1

REPORT INFORMATION
  Report Type: Spontaneous
  Country: US (occurrence: US)
  Receive Date: 20140617
  Receipt Date: 20150114
  Transmission Date: 20150720
  Serious: Yes (Disabling)
  Sender: FDA-Public Use
  Company Number: US-009507513-1406USA007849

PATIENT
  Sex: Male
  Weight: 72.56 kg

DRUGS (2)
  1. PROPECIA [Suspect]
     Active Substance: FINASTERIDE
     Indication: ANDROGENETIC ALOPECIA
     Dosage: 1 MG, QD
     Route: 048
     Dates: start: 199807, end: 200009
  2. PROPECIA [Suspect]
     Active Substance: FINASTERIDE
     Dosage: 1 MG, QD
     Route: 048
     Dates: start: 20070611, end: 20121003

REACTIONS (14)
  - Feeling abnormal [Not Recovered/Not Resolved]
  - Ejaculation disorder [Not Recovered/Not Resolved]
  - Acne [Unknown]
  - Inguinal hernia [Unknown]
  - Cognitive disorder [Not Recovered/Not Resolved]
  - Anxiety [Not Recovered/Not Resolved]
  - Sexual dysfunction [Not Recovered/Not Resolved]
  - Libido decreased [Not Recovered/Not Resolved]
  - Infection [Not Recovered/Not Resolved]
  - Arthritis [Unknown]
  - Inguinal hernia repair [Unknown]
  - Erectile dysfunction [Not Recovered/Not Resolved]
  - Ejaculation failure [Not Recovered/Not Resolved]
  - Depression [Not Recovered/Not Resolved]

NARRATIVE: CASE EVENT DATE: 200508
